FAERS Safety Report 11140736 (Version 2)
Quarter: 2016Q1

REPORT INFORMATION
  Report Type: Spontaneous
  Country: IT (occurrence: IT)
  Receive Date: 20150527
  Receipt Date: 20160210
  Transmission Date: 20160525
  Serious: Yes (Hospitalization, Other)
  Sender: FDA-Public Use
  Company Number: IT-OTSUKA-2015_001269

PATIENT
  Age: 24 Year
  Sex: Male

DRUGS (16)
  1. ABILIFY [Interacting]
     Active Substance: ARIPIPRAZOLE
     Indication: AGITATION
     Dosage: 30 MG, UNK
     Route: 048
  2. ABILIFY [Interacting]
     Active Substance: ARIPIPRAZOLE
     Indication: IDEAS OF REFERENCE
  3. ABILIFY [Interacting]
     Active Substance: ARIPIPRAZOLE
     Indication: INSOMNIA
  4. DELORAZEPAM [Interacting]
     Active Substance: DELORAZEPAM
     Indication: ANXIETY
     Dosage: 2 MG, QD
     Route: 048
  5. ABILIFY [Interacting]
     Active Substance: ARIPIPRAZOLE
     Indication: SOCIAL AVOIDANT BEHAVIOUR
  6. DELORAZEPAM [Interacting]
     Active Substance: DELORAZEPAM
     Indication: INSOMNIA
  7. OLANZAPINE. [Concomitant]
     Active Substance: OLANZAPINE
     Indication: PRODUCT USED FOR UNKNOWN INDICATION
     Dosage: UNK
     Route: 065
  8. DELORAZEPAM [Interacting]
     Active Substance: DELORAZEPAM
     Indication: IDEAS OF REFERENCE
  9. DIAZEPAM. [Concomitant]
     Active Substance: DIAZEPAM
     Indication: PRODUCT USED FOR UNKNOWN INDICATION
     Dosage: UNK
     Route: 065
  10. ABILIFY [Suspect]
     Active Substance: ARIPIPRAZOLE
     Indication: ANXIETY
     Dosage: 20 MG, QD
     Route: 048
  11. CLONAZEPAM. [Concomitant]
     Active Substance: CLONAZEPAM
     Indication: PRODUCT USED FOR UNKNOWN INDICATION
     Dosage: UNK
     Route: 065
  12. DELORAZEPAM [Interacting]
     Active Substance: DELORAZEPAM
     Indication: AGITATION
  13. DELORAZEPAM [Interacting]
     Active Substance: DELORAZEPAM
     Indication: BLUNTED AFFECT
  14. ABILIFY [Interacting]
     Active Substance: ARIPIPRAZOLE
     Indication: BLUNTED AFFECT
  15. DELORAZEPAM [Interacting]
     Active Substance: DELORAZEPAM
     Indication: SOCIAL AVOIDANT BEHAVIOUR
  16. VALPROIC ACID. [Concomitant]
     Active Substance: VALPROIC ACID
     Indication: PRODUCT USED FOR UNKNOWN INDICATION
     Dosage: UNK
     Route: 065

REACTIONS (3)
  - Hiccups [Recovered/Resolved]
  - Off label use [Unknown]
  - Drug interaction [Recovered/Resolved]
